FAERS Safety Report 25943873 (Version 2)
Quarter: 2025Q4

REPORT INFORMATION
  Report Type: Spontaneous
  Country: US (occurrence: US)
  Receive Date: 20251021
  Receipt Date: 20251128
  Transmission Date: 20260118
  Serious: No
  Sender: SANOFI AVENTIS
  Company Number: US-SA-2025SA312276

PATIENT
  Age: 19 Year
  Sex: Female

DRUGS (3)
  1. DUPIXENT [Suspect]
     Active Substance: DUPILUMAB
     Indication: Eosinophilic oesophagitis
     Dosage: 300 MG, QW
     Route: 058
     Dates: start: 202506
  2. DOXYCYCLINE [Suspect]
     Active Substance: DOXYCYCLINE
  3. AUGMENTIN [Suspect]
     Active Substance: AMOXICILLIN\CLAVULANATE POTASSIUM
     Dosage: 1 DF, Q12H FOR 10 DAYS
     Route: 048
     Dates: start: 20250412

REACTIONS (4)
  - Drug hypersensitivity [Unknown]
  - Lip swelling [Unknown]
  - Erythema [Unknown]
  - Swelling face [Unknown]

NARRATIVE: CASE EVENT DATE: 20250101
